FAERS Safety Report 23904376 (Version 2)
Quarter: 2024Q2

REPORT INFORMATION
  Report Type: Spontaneous
  Country: JP (occurrence: JP)
  Receive Date: 20240527
  Receipt Date: 20240607
  Transmission Date: 20240715
  Serious: Yes (Hospitalization)
  Sender: FDA-Public Use
  Company Number: JP-LEO Pharma-370548

PATIENT
  Sex: Male

DRUGS (4)
  1. ADBRY [Suspect]
     Active Substance: TRALOKINUMAB-LDRM
     Indication: Dermatitis atopic
     Dosage: 4 SYRINGES PER DOSE, S.C. INJECTION 150MG SYRINGE
     Route: 058
     Dates: start: 20240312
  2. ADBRY [Suspect]
     Active Substance: TRALOKINUMAB-LDRM
     Indication: Dermatitis atopic
     Dosage: 2 SYRINGES/ 1 DOSE?INJECTION 150MG SYRINGE
     Route: 058
     Dates: end: 20240508
  3. CELESTAMINE (Betamethasone and d-Chlorpheniramine Maleate) [Concomitant]
     Indication: Product used for unknown indication
     Route: 048
  4. REMITCH (Nalfurafine Hydrochloride) [Concomitant]
     Indication: Product used for unknown indication
     Route: 048

REACTIONS (1)
  - Cholelithiasis [Recovered/Resolved]
